FAERS Safety Report 5485489-1 (Version None)
Quarter: 2007Q4

REPORT INFORMATION
  Report Type: 
  Country: None (occurrence: None)
  Receive Date: 20071002
  Receipt Date: 20060907
  Transmission Date: 20080405
  Serious: No
  Sender: FDA-Public Use
  Company Number: 2006109501

PATIENT
  Age: 64 Year
  Sex: Male
  Weight: 107.5025 kg

DRUGS (12)
  1. DEPO-TESTOSTERONE [Suspect]
     Indication: BLOOD TESTOSTERONE NORMAL
     Dosage: (200 MG, 1 IN 2 WK)
     Dates: start: 20060401
  2. BUSPIRONE HCL [Concomitant]
  3. BUPROPION HCL [Concomitant]
  4. ATENOLOL [Concomitant]
  5. LISINOPRIL [Concomitant]
  6. ETODOLAC [Concomitant]
  7. ALL OTHER THERAPEUTIC PRODUCTS (ALL OTHER THERAPEUTIC PRODUCTS) [Concomitant]
  8. PROPOXYPHENE (DEXTROPROPOXYPHENE) [Concomitant]
  9. ACETYLSALICYLIC ACID SRT [Concomitant]
  10. RANITIDINE [Concomitant]
  11. SIMVASTATIN [Concomitant]
  12. TERAZOSIN HCL [Concomitant]

REACTIONS (2)
  - CONDITION AGGRAVATED [None]
  - DEPRESSION [None]
